FAERS Safety Report 9825846 (Version 1)
Quarter: 2014Q1

REPORT INFORMATION
  Report Type: Spontaneous
  Country: US (occurrence: None)
  Receive Date: 20140116
  Receipt Date: 20140116
  Transmission Date: 20141002
  Serious: Yes (Other)
  Sender: FDA-Public Use
  Company Number: None

PATIENT
  Age: 35 Year
  Sex: Female
  Weight: 59.88 kg

DRUGS (1)
  1. LEVOTHYROXINE [Suspect]
     Dosage: 25 MCG 1/2 QD
     Dates: start: 20120924, end: 20130511

REACTIONS (2)
  - Rash pruritic [None]
  - Product substitution issue [None]
